FAERS Safety Report 17607659 (Version 3)
Quarter: 2020Q2

REPORT INFORMATION
  Report Type: Spontaneous
  Country: BE (occurrence: BE)
  Receive Date: 20200331
  Receipt Date: 20200608
  Transmission Date: 20200713
  Serious: Yes (Other)
  Sender: FDA-Public Use
  Company Number: BE-PFIZER INC-2020130758

PATIENT
  Age: 50 Year
  Sex: Male

DRUGS (4)
  1. AMLODIPINE BESILATE [Suspect]
     Active Substance: AMLODIPINE BESYLATE
     Indication: HYPERTENSION
     Dosage: 10 MG, 1X/DAY
     Dates: start: 20181017
  2. FORZATEN [Suspect]
     Active Substance: AMLODIPINE BESYLATE\OLMESARTAN MEDOXOMIL
     Indication: HYPERTENSION
     Dosage: UNK
     Dates: start: 20190214
  3. DICLOFENAC SODIUM. [Concomitant]
     Active Substance: DICLOFENAC SODIUM
     Dosage: UNK
  4. AMLODIPINE BESILATE/INDAPAMIDE/PERINDOPRIL ARGININE [Suspect]
     Active Substance: AMLODIPINE BESYLATE\INDAPAMIDE\PERINDOPRIL ARGININE
     Indication: VENTRICULAR HYPERTROPHY
     Dosage: UNK
     Dates: start: 20181106

REACTIONS (7)
  - Blood glucose increased [Unknown]
  - Vitamin D decreased [Unknown]
  - Cervicobrachial syndrome [Not Recovered/Not Resolved]
  - Rotator cuff syndrome [Not Recovered/Not Resolved]
  - Blood chloride decreased [Unknown]
  - Hypokalaemia [Unknown]
  - Creatinine urine increased [Unknown]

NARRATIVE: CASE EVENT DATE: 20190214
